FAERS Safety Report 5762714-0 (Version None)
Quarter: 2008Q2

REPORT INFORMATION
  Report Type: 
  Country: None (occurrence: None)
  Receive Date: 20080609
  Receipt Date: 20080528
  Transmission Date: 20081010
  Serious: Yes (Life-Threatening)
  Sender: FDA-Public Use
  Company Number: JP-MERCK-0805USA06322

PATIENT
  Age: 91 Year
  Sex: Male

DRUGS (6)
  1. STROMECTOL [Suspect]
     Indication: ACARODERMATITIS
     Route: 048
     Dates: start: 20080522, end: 20080522
  2. MAGMITT [Concomitant]
     Route: 048
     Dates: start: 20080205, end: 20080521
  3. LUVOX [Concomitant]
     Route: 048
     Dates: start: 20080219, end: 20080526
  4. PROTECADIN [Concomitant]
     Route: 048
     Dates: start: 20080422, end: 20080522
  5. HOKUNALIN [Concomitant]
     Route: 061
     Dates: start: 20080422, end: 20080527
  6. TOMIRON [Concomitant]
     Route: 048
     Dates: start: 20080515, end: 20080518

REACTIONS (2)
  - DIARRHOEA [None]
  - HAEMATOCHEZIA [None]
